FAERS Safety Report 7968783-1 (Version None)
Quarter: 2011Q4

REPORT INFORMATION
  Report Type: 
  Country: None (occurrence: None)
  Receive Date: 20111209
  Receipt Date: 20111207
  Transmission Date: 20120403
  Serious: Yes (Hospitalization)
  Sender: FDA-Public Use
  Company Number: DE-ABBOTT-11P-062-0881362-00

PATIENT
  Sex: Female

DRUGS (3)
  1. THYROID DRUG [Concomitant]
     Indication: PRODUCT USED FOR UNKNOWN INDICATION
  2. PSYCHOTROPIC DRUGS [Concomitant]
     Indication: PRODUCT USED FOR UNKNOWN INDICATION
  3. HUMIRA [Suspect]
     Indication: ANKYLOSING SPONDYLITIS
     Route: 058
     Dates: start: 20110413, end: 20111001

REACTIONS (1)
  - MYOCARDITIS [None]
